FAERS Safety Report 9147488 (Version 2)
Quarter: 2013Q1

REPORT INFORMATION
  Report Type: Spontaneous
  Country: GB (occurrence: None)
  Receive Date: 20130220
  Receipt Date: 20130312
  Transmission Date: 20140127
  Serious: Yes (Death, Hospitalization)
  Sender: FDA-Public Use
  Company Number: THQ2013A01136

PATIENT
  Age: 50 Year
  Sex: Male

DRUGS (16)
  1. LANSOPRAZOLE (LANSOPRAZOLE) [Suspect]
     Route: 048
  2. DIAZEPAM (DIAZEPAM) [Suspect]
     Route: 048
  3. TIOTROPIUM BROMIDE [Suspect]
  4. CLOZARIL (CLOZAPINE) [Suspect]
     Route: 048
     Dates: start: 20110225
  5. SALBUTAMOL [Suspect]
     Dosage: 8 PUFF, AURICULAR (OTIC)
  6. HYOSCINE [Suspect]
     Route: 048
  7. PREDNISOLONE [Concomitant]
  8. AMISULPRIDE [Concomitant]
  9. ASPIRINE(ACETYLSALICYLIC ACID) [Concomitant]
  10. OMEPRAZOLE [Concomitant]
  11. MIRTAZAPINE [Concomitant]
  12. ISOSORBIDE MONONITRATE [Concomitant]
  13. PROCYCLIDINE [Concomitant]
  14. CARBOCISTEINE [Concomitant]
  15. SIMVASTATIN [Concomitant]
  16. SENNA(SENNA ALEXANDRIA) [Concomitant]

REACTIONS (3)
  - Chronic obstructive pulmonary disease [None]
  - Lower respiratory tract infection [None]
  - White blood cell count increased [None]
